FAERS Safety Report 6381454-0 (Version None)
Quarter: 2009Q3

REPORT INFORMATION
  Report Type: 
  Country: None (occurrence: None)
  Receive Date: 20090924
  Receipt Date: 20090915
  Transmission Date: 20100115
  Serious: Yes (Hospitalization)
  Sender: FDA-Public Use
  Company Number: GB-EBEWE-1377OXALI

PATIENT
  Age: 58 Year
  Sex: Male
  Weight: 88 kg

DRUGS (5)
  1. OXALIPLATIN [Suspect]
     Indication: RECTAL CANCER
     Dosage: 170MG, INTRAVENOUS
     Route: 042
     Dates: start: 20090720
  2. GRANISETRON HCL [Concomitant]
  3. DEXAMETHASONE 0.5MG TAB [Concomitant]
  4. FLUOROURACIL [Concomitant]
  5. FOLINIC ACID [Concomitant]

REACTIONS (3)
  - DIABETIC HYPERGLYCAEMIC COMA [None]
  - DIABETIC KETOACIDOSIS [None]
  - TYPE 1 DIABETES MELLITUS [None]
